FAERS Safety Report 8443645-4 (Version None)
Quarter: 2012Q2

REPORT INFORMATION
  Report Type: 
  Country: None (occurrence: None)
  Receive Date: 20120618
  Receipt Date: 20120608
  Transmission Date: 20120825
  Serious: Yes (Hospitalization, Other)
  Sender: FDA-Public Use
  Company Number: US-JNJFOC-20120106590

PATIENT
  Sex: Female
  Weight: 80.29 kg

DRUGS (3)
  1. REMICADE [Suspect]
     Indication: COLITIS ULCERATIVE
     Route: 042
  2. SULFADIAZINE [Concomitant]
     Route: 065
  3. ALL OTHER THERAPEUTIC AGENTS [Concomitant]
     Route: 065

REACTIONS (3)
  - COLECTOMY [None]
  - NO THERAPEUTIC RESPONSE [None]
  - ILEOSTOMY [None]
